FAERS Safety Report 24989725 (Version 17)
Quarter: 2025Q4

REPORT INFORMATION
  Report Type: Spontaneous
  Country: CA (occurrence: CA)
  Receive Date: 20250220
  Receipt Date: 20251224
  Transmission Date: 20260118
  Serious: Yes (Hospitalization, Other)
  Sender: KARYOPHARM THERAPEUTICS
  Company Number: CA-KARYOPHARM-2025KPT000113

PATIENT

DRUGS (13)
  1. XPOVIO [Suspect]
     Active Substance: SELINEXOR
     Indication: Plasma cell myeloma
     Dosage: 60 MG WEEKLY
     Route: 048
     Dates: start: 20250123, end: 2025
  2. XPOVIO [Suspect]
     Active Substance: SELINEXOR
     Dosage: 60 MG WEEKLY
     Route: 048
     Dates: start: 202502, end: 2025
  3. XPOVIO [Suspect]
     Active Substance: SELINEXOR
     Dosage: 60 MG WEEKLY
     Route: 048
     Dates: start: 2025, end: 2025
  4. XPOVIO [Suspect]
     Active Substance: SELINEXOR
     Dosage: 60 MG WEEKLY
     Route: 048
     Dates: start: 2025, end: 2025
  5. XPOVIO [Suspect]
     Active Substance: SELINEXOR
     Dosage: 60 MG WEEKLY
     Route: 048
     Dates: start: 2025, end: 2025
  6. XPOVIO [Suspect]
     Active Substance: SELINEXOR
     Dosage: 60 MG WEEKLY
     Route: 048
     Dates: start: 202508, end: 202509
  7. XPOVIO [Suspect]
     Active Substance: SELINEXOR
     Dosage: 40 MG WEEKLY
     Route: 048
     Dates: start: 202510, end: 2025
  8. XPOVIO [Suspect]
     Active Substance: SELINEXOR
     Dosage: 40 MILLIGRAM(S) EVERY 1 WEEK
     Route: 048
     Dates: start: 202511, end: 2025
  9. XPOVIO [Suspect]
     Active Substance: SELINEXOR
     Dosage: 40 MILLIGRAM(S) EVERY 1 WEEK
     Route: 048
     Dates: start: 202511
  10. ONDANSETRON [Concomitant]
     Active Substance: ONDANSETRON
     Dosage: 8 MG
  11. DEXAMETHASONE [Concomitant]
     Active Substance: DEXAMETHASONE
     Dosage: 20 MG
  12. BORTEZOMIB [Concomitant]
     Active Substance: BORTEZOMIB
  13. APREPITANT [Concomitant]
     Active Substance: APREPITANT
     Dosage: 125 MG

REACTIONS (28)
  - Retinal detachment [Unknown]
  - Full blood count decreased [Not Recovered/Not Resolved]
  - Dyspnoea exertional [Unknown]
  - Dysphagia [Not Recovered/Not Resolved]
  - Rash [Recovered/Resolved]
  - Influenza [Recovering/Resolving]
  - Diarrhoea [Recovered/Resolved]
  - Fatigue [Unknown]
  - Vision blurred [Recovered/Resolved]
  - Decreased appetite [Not Recovered/Not Resolved]
  - Dizziness [Unknown]
  - Nausea [Recovered/Resolved]
  - Diarrhoea [Recovered/Resolved]
  - Vomiting [Recovered/Resolved]
  - Gait disturbance [Unknown]
  - Hypoaesthesia [Unknown]
  - Constipation [Unknown]
  - Hypothermia [Unknown]
  - Chills [Recovered/Resolved]
  - Malaise [Not Recovered/Not Resolved]
  - Nausea [Recovering/Resolving]
  - Vision blurred [Unknown]
  - Anaemia [Unknown]
  - Weight decreased [Unknown]
  - Diarrhoea [Recovering/Resolving]
  - Product dose omission issue [Unknown]
  - Product use issue [Unknown]
  - Treatment delayed [Unknown]

NARRATIVE: CASE EVENT DATE: 20250101
